FAERS Safety Report 5964904-0 (Version None)
Quarter: 2008Q4

REPORT INFORMATION
  Report Type: 
  Country: None (occurrence: None)
  Receive Date: 20081124
  Receipt Date: 20081124
  Transmission Date: 20090506
  Serious: Yes (Other)
  Sender: FDA-Public Use
  Company Number: None

PATIENT
  Age: 57 Year
  Sex: Female
  Weight: 104.3273 kg

DRUGS (1)
  1. CORTROSYN [Suspect]

REACTIONS (6)
  - BLOOD PRESSURE INCREASED [None]
  - FEELING ABNORMAL [None]
  - HEART RATE INCREASED [None]
  - PARANOIA [None]
  - SOMNOLENCE [None]
  - STRESS [None]
